FAERS Safety Report 9028501 (Version 1)
Quarter: 2013Q1

REPORT INFORMATION
  Report Type: Spontaneous
  Country: CA (occurrence: CA)
  Receive Date: 20130124
  Receipt Date: 20130124
  Transmission Date: 20140127
  Serious: Yes (Death, Hospitalization)
  Sender: FDA-Public Use
  Company Number: CA-AMGEN-CANSP2012078758

PATIENT
  Age: 93 Year
  Sex: Female
  Weight: 60.77 kg

DRUGS (6)
  1. PROLIA [Suspect]
     Indication: OSTEOPOROSIS
     Dosage: 60 MG, Q6MO
     Route: 058
     Dates: start: 20110518
  2. DOMPERIDONE [Concomitant]
     Indication: DYSPEPSIA
     Dosage: 10 G, TID
     Route: 048
     Dates: start: 20090520
  3. SYNTHROID [Concomitant]
     Indication: HYPOTHYROIDISM
     Dosage: 0.075 UNK, QD
     Route: 048
     Dates: start: 20090520
  4. TRIAZIDE [Concomitant]
     Indication: HYPERTENSION
     Dosage: UNK
     Route: 048
     Dates: start: 20000520
  5. LIPITOR [Concomitant]
     Indication: DYSLIPIDAEMIA
     Dosage: 10 MG, UNK
     Route: 048
     Dates: start: 20090520
  6. DEXILANT [Concomitant]
     Indication: DYSPEPSIA
     Dosage: 60 MG, UNK
     Route: 048
     Dates: start: 20110518

REACTIONS (3)
  - Death [Fatal]
  - Pneumonia [Unknown]
  - Hiatus hernia [Unknown]
